FAERS Safety Report 14423291 (Version 1)
Quarter: 2018Q1

REPORT INFORMATION
  Report Type: Spontaneous
  Country: US (occurrence: US)
  Receive Date: 20180123
  Receipt Date: 20180123
  Transmission Date: 20180509
  Serious: No
  Sender: FDA-Public Use
  Company Number: US-JNJFOC-20170309849

PATIENT
  Sex: Female
  Weight: 58.97 kg

DRUGS (2)
  1. FENTANYL TRANSDERMAL SYSTEM [Suspect]
     Active Substance: FENTANYL
     Indication: PAIN
     Dosage: EVERY 72 HOURS, SOMETIMES EVERY 48 HOURS.
     Route: 062
  2. FENTANYL TRANSDERMAL SYSTEM [Suspect]
     Active Substance: FENTANYL
     Indication: PAIN
     Dosage: EVERY 72 HOURS, SOMETIMES EVERY 48 HOURS.
     Route: 062
     Dates: start: 2016

REACTIONS (2)
  - Product quality issue [Unknown]
  - Application site erosion [Unknown]

NARRATIVE: CASE EVENT DATE: 2016
